FAERS Safety Report 8362676-6 (Version None)
Quarter: 2012Q1

REPORT INFORMATION
  Report Type: 
  Country: None (occurrence: None)
  Receive Date: 20120323
  Receipt Date: 20111221
  Transmission Date: 20120608
  Serious: Yes (Hospitalization, Other)
  Sender: FDA-Public Use
  Company Number: 163-21880-11113330

PATIENT
  Age: 66 Year
  Sex: Female

DRUGS (6)
  1. ZOLPIDEM [Concomitant]
  2. REVLIMID [Suspect]
     Indication: MULTIPLE MYELOMA
     Dosage: 5 MG, 1 IN 1 D, PO, 10 MG, 2 IN 1 D, PO, 5 MG, 1 IN 1 D, PO, 10 MG, 2 IN 1 D, PO
     Route: 048
     Dates: start: 20110920, end: 20110101
  3. REVLIMID [Suspect]
     Indication: MULTIPLE MYELOMA
     Dosage: 5 MG, 1 IN 1 D, PO, 10 MG, 2 IN 1 D, PO, 5 MG, 1 IN 1 D, PO, 10 MG, 2 IN 1 D, PO
     Route: 048
     Dates: start: 20110101, end: 20110101
  4. REVLIMID [Suspect]
     Indication: MULTIPLE MYELOMA
     Dosage: 5 MG, 1 IN 1 D, PO, 10 MG, 2 IN 1 D, PO, 5 MG, 1 IN 1 D, PO, 10 MG, 2 IN 1 D, PO
     Route: 048
     Dates: start: 20111101
  5. REVLIMID [Suspect]
     Indication: MULTIPLE MYELOMA
     Dosage: 5 MG, 1 IN 1 D, PO, 10 MG, 2 IN 1 D, PO, 5 MG, 1 IN 1 D, PO, 10 MG, 2 IN 1 D, PO
     Route: 048
     Dates: start: 20110101
  6. PEPCID [Concomitant]

REACTIONS (2)
  - THROMBOCYTOPENIA [None]
  - SEPSIS [None]
